FAERS Safety Report 14994427 (Version 1)
Quarter: 2018Q2

REPORT INFORMATION
  Report Type: Spontaneous
  Country: TR (occurrence: TR)
  Receive Date: 20180611
  Receipt Date: 20180611
  Transmission Date: 20180711
  Serious: Yes (Hospitalization, Other)
  Sender: FDA-Public Use
  Company Number: TR-TEVA-2018-TR-905356

PATIENT
  Age: 62 Year
  Sex: Male

DRUGS (3)
  1. IBRUTINIB [Suspect]
     Active Substance: IBRUTINIB
     Indication: PRODUCT USED FOR UNKNOWN INDICATION
     Dosage: 140 MG, 1X3, UNKNOWN FREQ.
     Route: 065
  2. RITUXIMAB. [Suspect]
     Active Substance: RITUXIMAB
     Indication: PRODUCT USED FOR UNKNOWN INDICATION
     Route: 065
  3. BENDAMUSTINE HYDROCHLORIDE. [Suspect]
     Active Substance: BENDAMUSTINE HYDROCHLORIDE
     Indication: PRODUCT USED FOR UNKNOWN INDICATION
     Route: 042

REACTIONS (14)
  - Atelectasis [Unknown]
  - Face oedema [Unknown]
  - Bone marrow infiltration [Unknown]
  - Ear infection [Unknown]
  - Infection [Unknown]
  - Pneumonia [Unknown]
  - Aphthous ulcer [Unknown]
  - Anaemia [Unknown]
  - Diarrhoea [Unknown]
  - Weight decreased [Unknown]
  - Lip swelling [Unknown]
  - Lymphadenopathy [Unknown]
  - Neutropenia [Recovered/Resolved]
  - Oral infection [Unknown]
